FAERS Safety Report 6943505-1 (Version None)
Quarter: 2010Q3

REPORT INFORMATION
  Report Type: 
  Country: None (occurrence: None)
  Receive Date: 20100826
  Receipt Date: 20100816
  Transmission Date: 20110219
  Serious: Yes (Hospitalization, Other)
  Sender: FDA-Public Use
  Company Number: BR-ABBOTT-09P-020-0611415-00

PATIENT
  Sex: Female
  Weight: 74 kg

DRUGS (8)
  1. HUMIRA [Suspect]
     Indication: RHEUMATOID ARTHRITIS
     Route: 058
  2. HUMIRA [Suspect]
  3. CALDE (CALCIUM/VITAMIN D) [Suspect]
     Indication: OSTEOPOROSIS
     Dosage: 2 DAILY
     Route: 048
  4. DEFLAZACORT [Concomitant]
     Indication: PRODUCT USED FOR UNKNOWN INDICATION
     Route: 048
  5. LEFLUNOMIDE [Concomitant]
     Indication: RHEUMATOID ARTHRITIS
     Route: 048
  6. CHOLESTYRAMINE [Concomitant]
     Indication: PAIN
     Route: 048
  7. METHOTREXATE [Concomitant]
     Indication: RHEUMATOID ARTHRITIS
     Dosage: 1 INJECTION
  8. OXYCODONE HCL [Concomitant]
     Indication: PAIN
     Route: 048

REACTIONS (5)
  - ABDOMINAL PAIN [None]
  - INJECTION SITE ERYTHEMA [None]
  - MOBILITY DECREASED [None]
  - NEPHROLITHIASIS [None]
  - OSTEOPOROSIS [None]
